FAERS Safety Report 25856208 (Version 2)
Quarter: 2025Q4

REPORT INFORMATION
  Report Type: Spontaneous
  Country: US (occurrence: US)
  Receive Date: 20250928
  Receipt Date: 20251117
  Transmission Date: 20260118
  Serious: No
  Sender: SANOFI AVENTIS
  Company Number: US-SA-2025SA284935

PATIENT
  Age: 51 Year
  Sex: Male

DRUGS (2)
  1. ELOCTATE [Suspect]
     Active Substance: EFMOROCTOCOG ALFA
     Dosage: 4500 U
     Route: 042
  2. ELOCTATE [Suspect]
     Active Substance: EFMOROCTOCOG ALFA
     Dosage: 4445 U
     Route: 042

REACTIONS (4)
  - Haemorrhage [Not Recovered/Not Resolved]
  - Muscle strain [Unknown]
  - Mobility decreased [Unknown]
  - Joint lock [Unknown]

NARRATIVE: CASE EVENT DATE: 20250918
